FAERS Safety Report 14157427 (Version 3)
Quarter: 2017Q4

REPORT INFORMATION
  Report Type: Report from Study
  Country: AR (occurrence: AR)
  Receive Date: 20171105
  Receipt Date: 20171128
  Transmission Date: 20180321
  Serious: Yes (Death, Other)
  Sender: FDA-Public Use
  Company Number: PHHY2017AR158765

PATIENT
  Sex: Female

DRUGS (1)
  1. AFINITOR [Suspect]
     Active Substance: EVEROLIMUS
     Indication: BREAST CANCER
     Dosage: 10 MG, QD
     Route: 065
     Dates: start: 201201

REACTIONS (6)
  - Breast cancer [Fatal]
  - Metastases to central nervous system [Fatal]
  - Malignant neoplasm progression [Fatal]
  - Pleural effusion [Unknown]
  - Metastases to larynx [Fatal]
  - Speech disorder [Unknown]
